FAERS Safety Report 9939967 (Version 1)
Quarter: 2014Q1

REPORT INFORMATION
  Report Type: Report from Study
  Country: US (occurrence: US)
  Receive Date: 20140303
  Receipt Date: 20140303
  Transmission Date: 20141002
  Serious: Yes (Other)
  Sender: FDA-Public Use
  Company Number: US-ROCHE-1356849

PATIENT
  Sex: Male

DRUGS (7)
  1. LUCENTIS [Suspect]
     Indication: DIABETIC RETINAL OEDEMA
     Route: 050
  2. AVASTIN [Suspect]
     Indication: PRODUCT USED FOR UNKNOWN INDICATION
     Route: 065
  3. DICLOFENAC SODIUM [Concomitant]
     Route: 065
  4. FUROSEMIDE [Concomitant]
     Route: 065
  5. HUMALOG [Concomitant]
     Dosage: 100 UNIT/ML
     Route: 065
  6. LISINOPRIL [Concomitant]
     Route: 065
  7. RESTASIS [Concomitant]
     Route: 065

REACTIONS (5)
  - Eye irritation [Unknown]
  - Visual acuity reduced [Unknown]
  - Vitreous floaters [Unknown]
  - Lacrimation increased [Unknown]
  - Visual impairment [Unknown]
